FAERS Safety Report 7182993-5 (Version None)
Quarter: 2010Q4

REPORT INFORMATION
  Report Type: 
  Country: None (occurrence: None)
  Receive Date: 20101222
  Receipt Date: 20101216
  Transmission Date: 20110411
  Serious: Yes (Other)
  Sender: FDA-Public Use
  Company Number: US-PFIZER INC-2010173799

PATIENT
  Sex: Female
  Weight: 52.608 kg

DRUGS (6)
  1. CELEBREX [Suspect]
     Indication: HIP FRACTURE
     Dosage: 200 MG, 1X/DAY
     Route: 048
     Dates: start: 20101117, end: 20101121
  2. ACETYLSALICYLIC ACID [Concomitant]
     Indication: MYOCARDIAL INFARCTION
     Dosage: 81 MG, 1X/DAY
     Route: 048
  3. PLAVIX [Concomitant]
     Indication: MYOCARDIAL INFARCTION
     Dosage: 75 MG, 1X/DAY
     Route: 048
  4. LIPITOR [Concomitant]
     Indication: BLOOD CHOLESTEROL ABNORMAL
     Dosage: 20 MG, 1X/DAY
     Route: 048
  5. TOPROL-XL [Concomitant]
     Indication: HYPERTENSION
     Dosage: 12.5 MG, 1X/DAY
     Route: 048
  6. WARFARIN SODIUM [Concomitant]
     Indication: PULMONARY EMBOLISM
     Dosage: UNK

REACTIONS (3)
  - ABNORMAL LOSS OF WEIGHT [None]
  - DEPRESSION [None]
  - FATIGUE [None]
